FAERS Safety Report 12782599 (Version 1)
Quarter: 2016Q3

REPORT INFORMATION
  Report Type: Spontaneous
  Country: GB (occurrence: GB)
  Receive Date: 20160927
  Receipt Date: 20160927
  Transmission Date: 20161109
  Serious: Yes (Hospitalization, Other)
  Sender: FDA-Public Use
  Company Number: GB-AMGEN-GBRSP2016128478

PATIENT
  Age: 60 Year
  Sex: Female

DRUGS (1)
  1. PROLIA [Suspect]
     Active Substance: DENOSUMAB
     Indication: OSTEOPOROSIS
     Dosage: 1 DF, UNK
     Route: 051
     Dates: start: 2014, end: 2015

REACTIONS (4)
  - Cellulitis [Recovered/Resolved with Sequelae]
  - Phantom pain [Unknown]
  - Dyspnoea [Unknown]
  - Rash [Unknown]
